FAERS Safety Report 19679074 (Version 1)
Quarter: 2021Q3

REPORT INFORMATION
  Report Type: Spontaneous
  Country: TR (occurrence: TR)
  Receive Date: 20210810
  Receipt Date: 20210810
  Transmission Date: 20211014
  Serious: Yes (Other)
  Sender: FDA-Public Use
  Company Number: TR-ASTELLAS-2021US023926

PATIENT
  Age: 80 Year
  Sex: Male

DRUGS (8)
  1. KEPPRA [Concomitant]
     Active Substance: LEVETIRACETAM
     Indication: PRODUCT USED FOR UNKNOWN INDICATION
     Dosage: 500 MG IN NOON, 750 MG IN THE MORNING (500+250MG).
     Route: 065
  2. XTANDI [Suspect]
     Active Substance: ENZALUTAMIDE
     Route: 050
     Dates: start: 20210716
  3. BELOC ZOK [Concomitant]
     Active Substance: METOPROLOL SUCCINATE
     Indication: PRODUCT USED FOR UNKNOWN INDICATION
     Route: 065
  4. ELIGARD [Suspect]
     Active Substance: LEUPROLIDE ACETATE
     Indication: HORMONE-DEPENDENT PROSTATE CANCER
     Dosage: UNK UNK, EVERY 3 MONTH (SINCE 9 MONTH)
     Route: 065
  5. KEPPRA [Concomitant]
     Active Substance: LEVETIRACETAM
     Route: 065
     Dates: start: 20210624
  6. COUMADIN [Concomitant]
     Active Substance: WARFARIN SODIUM
     Indication: PRODUCT USED FOR UNKNOWN INDICATION
     Route: 065
  7. XTANDI [Suspect]
     Active Substance: ENZALUTAMIDE
     Route: 050
     Dates: start: 20210713
  8. XTANDI [Suspect]
     Active Substance: ENZALUTAMIDE
     Indication: HORMONE-DEPENDENT PROSTATE CANCER
     Dosage: 80 MG (2 DF (2 FILM COATED TABLETS)), ONCE DAILY
     Route: 050
     Dates: start: 20210627, end: 20210712

REACTIONS (10)
  - Hyperhidrosis [Not Recovered/Not Resolved]
  - Faeces soft [Recovered/Resolved]
  - Erythema [Unknown]
  - Off label use [Unknown]
  - Underdose [Unknown]
  - Fatigue [Unknown]
  - Incorrect route of product administration [Unknown]
  - Condition aggravated [Recovering/Resolving]
  - Arrhythmia [Recovering/Resolving]
  - Wrong technique in product usage process [Unknown]

NARRATIVE: CASE EVENT DATE: 20210627
